FAERS Safety Report 7191058-8 (Version None)
Quarter: 2010Q4

REPORT INFORMATION
  Report Type: 
  Country: None (occurrence: None)
  Receive Date: 20101222
  Receipt Date: 20101222
  Transmission Date: 20110411
  Serious: No
  Sender: FDA-Public Use
  Company Number: None

PATIENT
  Sex: Female

DRUGS (1)
  1. DARVOCET-N 100 [Suspect]
     Indication: BACK PAIN
     Dosage: 1 EVERY 6 HRS FOR PAIN

REACTIONS (2)
  - DIZZINESS [None]
  - PALPITATIONS [None]
